FAERS Safety Report 18500562 (Version 1)
Quarter: 2020Q4

REPORT INFORMATION
  Report Type: Spontaneous
  Country: US (occurrence: US)
  Receive Date: 20201112
  Receipt Date: 20201112
  Transmission Date: 20210114
  Serious: Yes (Hospitalization)
  Sender: FDA-Public Use
  Company Number: None

PATIENT
  Age: 37 Year
  Sex: Female
  Weight: 72.57 kg

DRUGS (7)
  1. SINGULAIR [Concomitant]
     Active Substance: MONTELUKAST SODIUM
  2. PARAGARD T 380A [Suspect]
     Active Substance: COPPER
     Dates: start: 20190227, end: 20201020
  3. MESTINON [Concomitant]
     Active Substance: PYRIDOSTIGMINE BROMIDE
  4. AZATHIOPRINE. [Concomitant]
     Active Substance: AZATHIOPRINE
  5. SPIRONALACTONE [Concomitant]
     Active Substance: SPIRONOLACTONE
  6. WELLBUTRIN [Concomitant]
     Active Substance: BUPROPION HYDROCHLORIDE
  7. SYNTHROID [Concomitant]
     Active Substance: LEVOTHYROXINE SODIUM

REACTIONS (7)
  - Pelvic pain [None]
  - Haemorrhage [None]
  - Dyspnoea [None]
  - Complication associated with device [None]
  - Device related infection [None]
  - Culture positive [None]
  - Staphylococcal infection [None]

NARRATIVE: CASE EVENT DATE: 20201020
